FAERS Safety Report 17747020 (Version 2)
Quarter: 2020Q2

REPORT INFORMATION
  Report Type: Spontaneous
  Country: SK (occurrence: SK)
  Receive Date: 20200505
  Receipt Date: 20200608
  Transmission Date: 20200714
  Serious: Yes (Congenital Anomaly, Other)
  Sender: FDA-Public Use
  Company Number: NVSC2020SK120209

PATIENT

DRUGS (9)
  1. THIAMINE. [Suspect]
     Active Substance: THIAMINE
     Indication: FOETAL EXPOSURE DURING PREGNANCY
     Dosage: UNK, (MATERNAL DOSE: 100 MG TID)
     Route: 064
  2. METOCLOPRAMIDE. [Suspect]
     Active Substance: METOCLOPRAMIDE
     Indication: FOETAL EXPOSURE DURING PREGNANCY
     Dosage: UNK, (MATERNAL DOSE: 10 MG TWICE DAILY)
     Route: 064
  3. POTASSIUM CHLORIDE. [Suspect]
     Active Substance: POTASSIUM CHLORIDE
     Indication: FOETAL EXPOSURE DURING PREGNANCY
     Dosage: UNK, (MATERNAL DOSE: 1.5 G BID)
     Route: 064
  4. CEFUROXIME. [Suspect]
     Active Substance: CEFUROXIME
     Indication: FOETAL EXPOSURE DURING PREGNANCY
     Dosage: UNK, (MATERNAL DOSE: 500 MG BID)
     Route: 064
  5. MAGNESIUM [Suspect]
     Active Substance: MAGNESIUM
     Indication: FOETAL EXPOSURE DURING PREGNANCY
     Dosage: UNK, (MATERNAL DOSE: 1 MG BID)
     Route: 064
  6. SERTRALINE [Suspect]
     Active Substance: SERTRALINE HYDROCHLORIDE
     Indication: FOETAL EXPOSURE DURING PREGNANCY
     Dosage: UNK
     Route: 064
  7. RANITIDINE. [Suspect]
     Active Substance: RANITIDINE
     Indication: FOETAL EXPOSURE DURING PREGNANCY
     Dosage: UNK, (MATERNAL DOSE: 50 MG ONCE DAILY)
     Route: 064
  8. CARVEDILOL. [Suspect]
     Active Substance: CARVEDILOL
     Indication: FOETAL EXPOSURE DURING PREGNANCY
     Dosage: UNK, (MATERNAL DOSE: 12.5 MG BID)
     Route: 064
  9. URAPIDIL [Suspect]
     Active Substance: URAPIDIL
     Indication: FOETAL EXPOSURE DURING PREGNANCY
     Dosage: UNK, (MATERNAL DOSE: 250 MG)
     Route: 064

REACTIONS (3)
  - Premature baby [Unknown]
  - Foetal exposure during pregnancy [Unknown]
  - Cleft lip [Unknown]
